FAERS Safety Report 9684272 (Version 1)
Quarter: 2013Q4

REPORT INFORMATION
  Report Type: Spontaneous
  Country: None (occurrence: US)
  Receive Date: 20131112
  Receipt Date: 20131112
  Transmission Date: 20140711
  Serious: No
  Sender: FDA-Public Use
  Company Number: US-FOUGERA-2013FO000114

PATIENT
  Age: 71 Year
  Sex: Female
  Weight: 51.76 kg

DRUGS (5)
  1. CLOBETASOL PROPIONATE [Suspect]
     Indication: PSORIASIS
     Route: 061
  2. TACLONEX [Suspect]
     Indication: PSORIASIS
     Route: 061
     Dates: start: 20120208, end: 20130414
  3. SYNTHROID [Concomitant]
     Indication: HYPOTHYROIDISM
     Route: 048
     Dates: start: 1994, end: 2011
  4. TIROSINT [Concomitant]
     Indication: PARATHYROID GLAND OPERATION
     Route: 048
     Dates: start: 20120108
  5. TIROSINT [Concomitant]
     Route: 048

REACTIONS (11)
  - Drug ineffective [Unknown]
  - Hyperparathyroidism [Recovering/Resolving]
  - Blood calcium increased [Recovering/Resolving]
  - Vitamin D decreased [Recovering/Resolving]
  - Weight decreased [Recovering/Resolving]
  - Confusional state [Recovering/Resolving]
  - Folliculitis [Recovering/Resolving]
  - Condition aggravated [Recovering/Resolving]
  - Back pain [Recovering/Resolving]
  - Bone decalcification [Recovering/Resolving]
  - Application site pain [Recovering/Resolving]
